FAERS Safety Report 9516322 (Version 4)
Quarter: 2014Q1

REPORT INFORMATION
  Report Type: Spontaneous
  Country: US (occurrence: US)
  Receive Date: 20130911
  Receipt Date: 20140107
  Transmission Date: 20141002
  Serious: Yes (Hospitalization, Other)
  Sender: FDA-Public Use
  Company Number: US-GILEAD-2013-0082985

PATIENT
  Age: 74 Year
  Sex: Male

DRUGS (3)
  1. LETAIRIS [Suspect]
     Indication: PULMONARY HYPERTENSION
     Dosage: 10 MG, QD
     Route: 048
     Dates: start: 20120214
  2. LETAIRIS [Suspect]
     Indication: COR PULMONALE CHRONIC
  3. LETAIRIS [Suspect]
     Indication: CHRONIC OBSTRUCTIVE PULMONARY DISEASE

REACTIONS (9)
  - Fall [Unknown]
  - Rib fracture [Unknown]
  - Respiratory distress [Unknown]
  - Cardiac failure congestive [Unknown]
  - Pleural effusion [Unknown]
  - Cardiac failure [Unknown]
  - Fall [Unknown]
  - Nasopharyngitis [Unknown]
  - Dizziness [Unknown]
